FAERS Safety Report 8159779-8 (Version None)
Quarter: 2012Q1

REPORT INFORMATION
  Report Type: 
  Country: None (occurrence: None)
  Receive Date: 20120223
  Receipt Date: 20120215
  Transmission Date: 20120608
  Serious: Yes (Hospitalization, Other)
  Sender: FDA-Public Use
  Company Number: US-ACTELION-A-NJ2011-57849

PATIENT

DRUGS (3)
  1. COUMADIN [Concomitant]
  2. TRACLEER [Suspect]
     Indication: PULMONARY ARTERIAL HYPERTENSION
     Dosage: UNK
     Route: 048
     Dates: start: 20110322
  3. OXYGEN [Concomitant]

REACTIONS (8)
  - DRUG DOSE OMISSION [None]
  - STENT PLACEMENT [None]
  - URINARY CYSTECTOMY [None]
  - NEPHROSTOMY TUBE PLACEMENT [None]
  - PAIN [None]
  - NEUROGENIC BLADDER [None]
  - HYDRONEPHROSIS [None]
  - URINARY TRACT INFECTION [None]
